FAERS Safety Report 12780866 (Version 1)
Quarter: 2016Q3

REPORT INFORMATION
  Report Type: Spontaneous
  Country: US (occurrence: US)
  Receive Date: 20160926
  Receipt Date: 20160926
  Transmission Date: 20161109
  Serious: Yes (Hospitalization)
  Sender: FDA-Public Use
  Company Number: US-SA-2016SA174426

PATIENT
  Sex: Female

DRUGS (3)
  1. LANTUS [Suspect]
     Active Substance: INSULIN GLARGINE
     Indication: DIABETES MELLITUS
     Route: 058
  2. FLEXPEN [Concomitant]
     Active Substance: UNSPECIFIED INGREDIENT
  3. NOVOLOG [Suspect]
     Active Substance: INSULIN ASPART
     Route: 058

REACTIONS (5)
  - Pyrexia [Unknown]
  - Abscess [Unknown]
  - Abasia [Unknown]
  - White blood cell count increased [Unknown]
  - Loss of consciousness [Unknown]
